FAERS Safety Report 23734861 (Version 1)
Quarter: 2024Q2

REPORT INFORMATION
  Report Type: Spontaneous
  Country: US (occurrence: US)
  Receive Date: 20240412
  Receipt Date: 20240412
  Transmission Date: 20240716
  Serious: Yes (Hospitalization, Other)
  Sender: FDA-Public Use
  Company Number: US-CIPLA LTD.-2024US03420

PATIENT

DRUGS (5)
  1. FENOFIBRATE [Suspect]
     Active Substance: FENOFIBRATE
     Indication: Familial partial lipodystrophy
     Dosage: UNK
     Route: 065
  2. LEPTIN HUMAN [Suspect]
     Active Substance: LEPTIN HUMAN
     Indication: Familial partial lipodystrophy
     Dosage: UNK
     Route: 065
  3. NIACIN [Suspect]
     Active Substance: NIACIN
     Indication: Familial partial lipodystrophy
     Dosage: UNK
     Route: 065
  4. OMEGA-3 FATTY ACIDS [Suspect]
     Active Substance: OMEGA-3 FATTY ACIDS
     Indication: Familial partial lipodystrophy
     Dosage: UNK
     Route: 065
  5. INSULIN NOS [Concomitant]
     Active Substance: INSULIN NOS
     Indication: Type 2 diabetes mellitus
     Dosage: UNK, U-500
     Route: 065

REACTIONS (3)
  - Drug ineffective for unapproved indication [Unknown]
  - Pancreatitis [Unknown]
  - Off label use [Unknown]
